FAERS Safety Report 18490576 (Version 2)
Quarter: 2020Q4

REPORT INFORMATION
  Report Type: Spontaneous
  Country: US (occurrence: US)
  Receive Date: 20201111
  Receipt Date: 20201119
  Transmission Date: 20210114
  Serious: Yes (Hospitalization, Other)
  Sender: FDA-Public Use
  Company Number: US-PFIZER INC-2020443452

PATIENT
  Age: 79 Year
  Sex: Male

DRUGS (2)
  1. IBRANCE [Suspect]
     Active Substance: PALBOCICLIB
     Indication: SOFT TISSUE SARCOMA
     Dosage: 75 MG, CYCLIC (ONCE DAILY FOR 21 DAYS)
     Route: 048
     Dates: start: 20201009, end: 20201023
  2. IBRANCE [Suspect]
     Active Substance: PALBOCICLIB
     Dosage: 5 MG, CYCLIC (ONCE DAILY FOR 21 DAYS)
     Route: 048
     Dates: start: 2020, end: 2020

REACTIONS (6)
  - Off label use [Unknown]
  - Red blood cell count decreased [Unknown]
  - Confusional state [Unknown]
  - Dyspnoea [Unknown]
  - Product use in unapproved indication [Unknown]
  - Pleural effusion [Unknown]

NARRATIVE: CASE EVENT DATE: 202010
